FAERS Safety Report 9739162 (Version 2)
Quarter: 2013Q4

REPORT INFORMATION
  Report Type: Spontaneous
  Country: FR (occurrence: FR)
  Receive Date: 20131209
  Receipt Date: 20131230
  Transmission Date: 20140711
  Serious: Yes (Death, Hospitalization)
  Sender: FDA-Public Use
  Company Number: FR-EISAI INC-E2020-13280-SPO-FR

PATIENT
  Age: 64 Year
  Sex: Female

DRUGS (12)
  1. ARICEPT [Suspect]
     Indication: DEMENTIA
     Route: 048
     Dates: end: 20130829
  2. PREVISCAN [Suspect]
     Indication: ATRIAL FIBRILLATION
     Dosage: ADJUSTED FOR INR BETWEEN 2 AND 3
     Route: 048
     Dates: end: 20130829
  3. TAHOR [Suspect]
     Indication: HYPERCHOLESTEROLAEMIA
     Dosage: 10MG
     Route: 048
     Dates: end: 20130909
  4. EBIXA [Suspect]
     Indication: DEMENTIA
     Dosage: 20MG
     Route: 048
     Dates: end: 20130829
  5. MIANSERINE HYDROCHLORIDE [Suspect]
     Indication: PRODUCT USED FOR UNKNOWN INDICATION
     Dosage: 15MG
     Route: 048
     Dates: end: 20130829
  6. RISPERDAL [Suspect]
     Indication: PRODUCT USED FOR UNKNOWN INDICATION
     Dosage: 1MG
     Route: 048
     Dates: end: 20130829
  7. TAREG [Suspect]
     Indication: HYPERTENSION
     Dosage: 40MG
     Route: 048
     Dates: end: 20130829
  8. LASILIX [Suspect]
     Indication: HYPERTENSION
     Dosage: 40MG
     Route: 048
     Dates: end: 20130829
  9. CARDENSIEL [Suspect]
     Indication: HYPERTENSION
     Dosage: 2.5MG
     Route: 048
     Dates: end: 20130829
  10. INEXIUM [Suspect]
     Indication: PRODUCT USED FOR UNKNOWN INDICATION
     Dosage: 20MG
     Route: 048
     Dates: end: 20130829
  11. LANTUS [Suspect]
     Indication: PRODUCT USED FOR UNKNOWN INDICATION
     Dosage: UNKNOWN
     Route: 058
     Dates: end: 20130829
  12. ZYLORIC [Suspect]
     Indication: HYPERURICAEMIA
     Dosage: 100MG
     Route: 058
     Dates: end: 20130829

REACTIONS (1)
  - Subdural haematoma [Fatal]
